FAERS Safety Report 7280629-6 (Version None)
Quarter: 2011Q1

REPORT INFORMATION
  Report Type: 
  Country: None (occurrence: None)
  Receive Date: 20110126
  Receipt Date: 20100216
  Transmission Date: 20110831
  Serious: Yes (Other)
  Sender: FDA-Public Use
  Company Number: 2010AP000306

PATIENT
  Age: 28 Year
  Sex: Female
  Weight: 85.2762 kg

DRUGS (8)
  1. HYDROCHLORIDE [Concomitant]
  2. TOPIRAMATE [Concomitant]
  3. BUTORPHANOL [Suspect]
     Indication: MIGRAINE
     Dosage: PRN;NAS
     Dates: start: 20050101
  4. VENLAFAXINE [Concomitant]
  5. CLONAZEPAM [Concomitant]
  6. ALPRAZOLAM [Concomitant]
  7. EXZOPICLONE MIDRIN /00450801/ [Concomitant]
  8. ONDANSETRON [Concomitant]

REACTIONS (3)
  - VISION BLURRED [None]
  - HALLUCINATION [None]
  - EUPHORIC MOOD [None]
